FAERS Safety Report 6111186-5 (Version None)
Quarter: 2009Q1

REPORT INFORMATION
  Report Type: 
  Country: None (occurrence: None)
  Receive Date: 20090309
  Receipt Date: 20090309
  Transmission Date: 20090719
  Serious: Yes (Life-Threatening, Hospitalization)
  Sender: FDA-Public Use
  Company Number: None

PATIENT
  Sex: Female
  Weight: 50 kg

DRUGS (13)
  1. SIROLIMUS [Suspect]
     Indication: IMMUNOSUPPRESSION
     Dosage: 1MG QD PO
     Route: 048
     Dates: start: 20070423, end: 20080521
  2. SIROLIMUS [Suspect]
     Indication: LUNG TRANSPLANT
     Dosage: 1MG QD PO
     Route: 048
     Dates: start: 20070423, end: 20080521
  3. PROGRAF [Concomitant]
  4. PREDNISONE [Concomitant]
  5. TRIMETHOPRIM-SULFAMETHOXAZOLE [Concomitant]
  6. M.V.I. [Concomitant]
  7. ASPIRIN [Concomitant]
  8. KDUR [Concomitant]
  9. AMBIEN [Concomitant]
  10. FLUTICASONE PROPIONATE [Concomitant]
  11. ACETYLCYSTEINE [Concomitant]
  12. MORPHINE [Concomitant]
  13. POTASSIUM CHLORIDE [Concomitant]

REACTIONS (4)
  - BRONCHOSTENOSIS [None]
  - DEEP VEIN THROMBOSIS [None]
  - PSEUDOMONAS INFECTION [None]
  - SINUSITIS BACTERIAL [None]
